FAERS Safety Report 7942829-9 (Version None)
Quarter: 2011Q4

REPORT INFORMATION
  Report Type: 
  Country: None (occurrence: None)
  Receive Date: 20111122
  Receipt Date: 20110823
  Transmission Date: 20120403
  Serious: Yes (Other)
  Sender: FDA-Public Use
  Company Number: PHHY2011US37406

PATIENT
  Age: 59 Year
  Sex: Female
  Weight: 89.9936 kg

DRUGS (6)
  1. CYCLOBENZAPRINE (CYCLOBENZAPRINE) TABLET 10/01/2010 TO ONGOING [Concomitant]
  2. GILENYA [Suspect]
     Indication: MULTIPLE SCLEROSIS
     Dosage: 0.5 MG, QD, ORAL
     Route: 048
     Dates: start: 20110426
  3. PRILOSEC (OMEPRAZOLE) TABLET 04/04/2006 TO ONGOING [Concomitant]
  4. HYDROCHLOROTHIAZIDE (HYDROCHLOROTHIAZIDE) TABLET 06/24/2011 TO ONGOING [Concomitant]
  5. CELEBREX (CELECOXIB) TABLET 01/-/2011 TO ONGOING [Concomitant]
  6. VITAMIN D (ERGOCALCIFEROL) TABLET 01/-/2001 TO ONGOING [Concomitant]

REACTIONS (4)
  - PALPITATIONS [None]
  - FEELING ABNORMAL [None]
  - DIZZINESS [None]
  - BRADYCARDIA [None]
